FAERS Safety Report 5752809-X (Version None)
Quarter: 2008Q2

REPORT INFORMATION
  Report Type: 
  Country: None (occurrence: None)
  Receive Date: 20080527
  Receipt Date: 20080527
  Transmission Date: 20081010
  Serious: Yes (Other)
  Sender: FDA-Public Use
  Company Number: None

PATIENT
  Age: 62 Year
  Sex: Female
  Weight: 52.1637 kg

DRUGS (2)
  1. CHANTIX [Suspect]
     Indication: SMOKING CESSATION THERAPY
     Dates: start: 20060501, end: 20061101
  2. CHANTIX [Suspect]

REACTIONS (3)
  - HEART RATE INCREASED [None]
  - NIGHTMARE [None]
  - SLEEP DISORDER [None]
